FAERS Safety Report 20892914 (Version 6)
Quarter: 2022Q3

REPORT INFORMATION
  Report Type: Report from Study
  Country: FR (occurrence: FR)
  Receive Date: 20220531
  Receipt Date: 20220922
  Transmission Date: 20221027
  Serious: Yes (Other)
  Sender: FDA-Public Use
  Company Number: FR-CELGENE-FRA-20210302370

PATIENT
  Age: 57 Year
  Sex: Female
  Weight: 80 kg

DRUGS (49)
  1. ROMIDEPSIN [Suspect]
     Active Substance: ROMIDEPSIN
     Indication: T-cell lymphoma
     Dosage: FREQUENCY TEXT: DAYS 1, 8, 15 EACH 28 DAY CYCLE?14 MILLIGRAM/SQ. METER
     Route: 042
     Dates: start: 20200513
  2. ROMIDEPSIN [Suspect]
     Active Substance: ROMIDEPSIN
     Route: 042
     Dates: start: 20201230
  3. ROMIDEPSIN [Suspect]
     Active Substance: ROMIDEPSIN
     Route: 042
     Dates: start: 20210519
  4. ROMIDEPSIN [Suspect]
     Active Substance: ROMIDEPSIN
     Route: 042
     Dates: start: 20210616
  5. ROMIDEPSIN [Suspect]
     Active Substance: ROMIDEPSIN
     Route: 042
     Dates: start: 20210713
  6. ROMIDEPSIN [Suspect]
     Active Substance: ROMIDEPSIN
     Route: 042
     Dates: start: 20210721
  7. ROMIDEPSIN [Suspect]
     Active Substance: ROMIDEPSIN
     Route: 042
     Dates: start: 20210728
  8. ROMIDEPSIN [Suspect]
     Active Substance: ROMIDEPSIN
     Route: 042
  9. ROMIDEPSIN [Suspect]
     Active Substance: ROMIDEPSIN
     Dosage: FREQUENCY TEXT: DAY 1, 8, 15 OF 28 DAY CYCLE
     Route: 042
     Dates: start: 20210811, end: 20210825
  10. ROMIDEPSIN [Suspect]
     Active Substance: ROMIDEPSIN
     Route: 042
     Dates: start: 20210908
  11. ROMIDEPSIN [Suspect]
     Active Substance: ROMIDEPSIN
     Route: 042
     Dates: start: 20211006
  12. ROMIDEPSIN [Suspect]
     Active Substance: ROMIDEPSIN
     Route: 042
     Dates: start: 20211102
  13. ROMIDEPSIN [Suspect]
     Active Substance: ROMIDEPSIN
     Route: 042
     Dates: start: 20211229
  14. ROMIDEPSIN [Suspect]
     Active Substance: ROMIDEPSIN
     Route: 042
     Dates: start: 20220105
  15. ROMIDEPSIN [Suspect]
     Active Substance: ROMIDEPSIN
     Route: 042
     Dates: start: 20220112
  16. ROMIDEPSIN [Suspect]
     Active Substance: ROMIDEPSIN
     Route: 042
     Dates: start: 20220330
  17. ROMIDEPSIN [Suspect]
     Active Substance: ROMIDEPSIN
     Route: 042
     Dates: start: 20220406
  18. ROMIDEPSIN [Suspect]
     Active Substance: ROMIDEPSIN
     Route: 042
     Dates: start: 20220413
  19. ROMIDEPSIN [Suspect]
     Active Substance: ROMIDEPSIN
     Route: 042
     Dates: start: 20220629
  20. ROMIDEPSIN [Suspect]
     Active Substance: ROMIDEPSIN
     Route: 042
     Dates: start: 20220727
  21. ROMIDEPSIN [Suspect]
     Active Substance: ROMIDEPSIN
     Dosage: C 29: 07 MG/M? ON DAYS: D1, D8, D15.
     Route: 042
     Dates: start: 20220818
  22. ROMIDEPSIN [Suspect]
     Active Substance: ROMIDEPSIN
     Route: 042
     Dates: start: 20220817, end: 20220817
  23. ROMIDEPSIN [Suspect]
     Active Substance: ROMIDEPSIN
     Route: 042
     Dates: start: 20220824, end: 20220824
  24. ROMIDEPSIN [Suspect]
     Active Substance: ROMIDEPSIN
     Route: 042
     Dates: start: 20220831, end: 20220831
  25. DIAZEPAM [Concomitant]
     Active Substance: DIAZEPAM
     Indication: Depression
     Dosage: 50, 4 IN 1 DAY
     Route: 065
  26. DIAZEPAM [Concomitant]
     Active Substance: DIAZEPAM
     Indication: Anxiety
  27. REVATIO [Concomitant]
     Active Substance: SILDENAFIL CITRATE
     Indication: Hypertension
     Dosage: 20, 3 IN 1 DAY
     Route: 065
  28. FILGRASTIM [Concomitant]
     Active Substance: FILGRASTIM
     Indication: Neutropenia
     Dosage: 30, 3 IN 1 DAY
     Route: 065
  29. ARANESP [Concomitant]
     Active Substance: DARBEPOETIN ALFA
     Indication: Anaemia
     Dosage: FREQUENCY TEXT: NOT PROVIDED?150
     Route: 065
  30. ATOVAQUONE [Concomitant]
     Active Substance: ATOVAQUONE
     Indication: Product used for unknown indication
     Dosage: 750
     Route: 065
  31. BACTRIM [Concomitant]
     Active Substance: SULFAMETHOXAZOLE\TRIMETHOPRIM
     Indication: Product used for unknown indication
     Dosage: 3 IN 1 DAY
     Route: 065
  32. PAROXETINE [Concomitant]
     Active Substance: PAROXETINE
     Indication: Depression
     Route: 065
  33. PERINDOPRIL [Concomitant]
     Active Substance: PERINDOPRIL
     Indication: Hypertension
     Dosage: 5
     Route: 065
  34. PERINDOPRIL [Concomitant]
     Active Substance: PERINDOPRIL
     Indication: Hypothyroidism
     Dosage: 25
     Route: 065
  35. LYRICA [Concomitant]
     Active Substance: PREGABALIN
     Indication: Neuropathy peripheral
     Dosage: 200, 3 IN 1 DAY
     Route: 065
  36. TRIMEPRAZINE [Concomitant]
     Active Substance: TRIMEPRAZINE
     Indication: Product used for unknown indication
     Dosage: FREQUENCY TEXT: NOT PROVIDED
     Route: 065
  37. ZOPICLONE [Concomitant]
     Active Substance: ZOPICLONE
     Indication: Product used for unknown indication
     Dosage: FREQUENCY TEXT: NOT PROVIDED
     Route: 065
  38. OXAZEPAM [Concomitant]
     Active Substance: OXAZEPAM
     Indication: Product used for unknown indication
     Dosage: 50, 3 IN 1 DAY
     Route: 065
  39. AMITRIPTYLINE HYDROCHLORIDE [Concomitant]
     Active Substance: AMITRIPTYLINE HYDROCHLORIDE
     Indication: Product used for unknown indication
     Dosage: FREQUENCY TEXT: NOT PROVIDED
     Route: 065
  40. OMEPRAZOLE [Concomitant]
     Active Substance: OMEPRAZOLE
     Indication: Product used for unknown indication
     Dosage: FREQUENCY TEXT: NOT PROVIDED
     Route: 065
  41. VALACYCLOVIR [Concomitant]
     Active Substance: VALACYCLOVIR HYDROCHLORIDE
     Indication: Product used for unknown indication
     Dosage: FREQUENCY TEXT: NOT PROVIDED
     Route: 065
  42. FUROSEMIDE [Concomitant]
     Active Substance: FUROSEMIDE
     Indication: Hypertension
     Dosage: 40
     Route: 065
  43. DEXAMETHASONE [Concomitant]
     Active Substance: DEXAMETHASONE
     Indication: Product used for unknown indication
     Dosage: FREQUENCY TEXT: NOT PROVIDED
     Route: 065
  44. CYTARABINE [Concomitant]
     Active Substance: CYTARABINE
     Indication: Product used for unknown indication
     Dosage: FREQUENCY TEXT: NOT PROVIDED
     Route: 065
  45. CARBOPLATIN [Concomitant]
     Active Substance: CARBOPLATIN
     Indication: Product used for unknown indication
     Dosage: FREQUENCY TEXT: NOT PROVIDED
     Route: 065
  46. BENTEX [Concomitant]
     Indication: Product used for unknown indication
     Dosage: FREQUENCY TEXT: NOT PROVIDED
     Route: 065
  47. LOPRAZOLAM [Concomitant]
     Active Substance: LOPRAZOLAM
     Indication: Product used for unknown indication
     Dosage: 20
     Route: 065
  48. VALACYCLOVIR HYDROCHLORIDE [Concomitant]
     Active Substance: VALACYCLOVIR HYDROCHLORIDE
     Indication: Product used for unknown indication
     Dosage: 500
     Route: 065
  49. POTASSIUM CHLORIDE [Concomitant]
     Active Substance: POTASSIUM CHLORIDE
     Indication: Hypokalaemia
     Dosage: FREQUENCY TEXT: NOT PROVIDED?1G/DL
     Route: 065

REACTIONS (3)
  - Bone marrow failure [Not Recovered/Not Resolved]
  - Hepatic failure [Not Recovered/Not Resolved]
  - Thrombocytopenia [Unknown]

NARRATIVE: CASE EVENT DATE: 20201230
